FAERS Safety Report 20370287 (Version 3)
Quarter: 2022Q1

REPORT INFORMATION
  Report Type: Report from Study
  Country: ES (occurrence: ES)
  Receive Date: 20220124
  Receipt Date: 20220228
  Transmission Date: 20220424
  Serious: Yes (Other)
  Sender: FDA-Public Use
  Company Number: ES-ABBVIE-21K-144-3956801-00

PATIENT
  Age: 60 Year
  Sex: Male

DRUGS (7)
  1. ROPINIROLE [Suspect]
     Active Substance: ROPINIROLE
     Indication: Product used for unknown indication
     Dosage: UNK, PILLS
     Route: 048
  2. ROPINIROLE [Suspect]
     Active Substance: ROPINIROLE
     Dosage: 1 MILLIGRAM, QD
     Route: 048
  3. CARBIDOPA\LEVODOPA [Suspect]
     Active Substance: CARBIDOPA\LEVODOPA
     Indication: Parkinson^s disease
     Dosage: 2021/DOSE MODIFICATION DONE; ROA REPORTED AS INTRACATHETER
     Route: 050
     Dates: start: 2021
  4. CARBIDOPA\LEVODOPA [Suspect]
     Active Substance: CARBIDOPA\LEVODOPA
     Dosage: ROA REPORTED AS INTRACATHETER
     Route: 050
     Dates: start: 20160121, end: 2021
  5. RIVOTRIL [Suspect]
     Active Substance: CLONAZEPAM
     Indication: Product used for unknown indication
     Dosage: START DATE: 2021
     Route: 048
     Dates: start: 2021
  6. AMANTADINE [Concomitant]
     Active Substance: AMANTADINE
     Indication: Product used for unknown indication
     Dosage: UNK, PILLS/ START DATE: 2021
     Route: 048
     Dates: start: 2021
  7. AMANTADINE [Concomitant]
     Active Substance: AMANTADINE
     Dosage: UNK, PILLS
     Route: 048
     Dates: end: 2021

REACTIONS (6)
  - Parkinson^s disease [Unknown]
  - Withdrawal syndrome [Not Recovered/Not Resolved]
  - Hyperkinesia [Recovering/Resolving]
  - Fall [Recovered/Resolved]
  - Walking aid user [Unknown]
  - Dyskinesia [Recovering/Resolving]

NARRATIVE: CASE EVENT DATE: 20210101
